FAERS Safety Report 5612606-2 (Version None)
Quarter: 2008Q1

REPORT INFORMATION
  Report Type: 
  Country: None (occurrence: None)
  Receive Date: 20080204
  Receipt Date: 20080121
  Transmission Date: 20080703
  Serious: Yes (Other)
  Sender: FDA-Public Use
  Company Number: B0499512A

PATIENT
  Age: 54 Year
  Sex: Female
  Weight: 71 kg

DRUGS (5)
  1. AVANDIA [Suspect]
     Dosage: 4MG PER DAY
     Route: 048
     Dates: start: 20070101, end: 20071001
  2. METFORMIN HCL [Concomitant]
     Dosage: 1000MG THREE TIMES PER DAY
     Route: 048
     Dates: start: 19930101
  3. AMARYL [Concomitant]
     Route: 048
     Dates: start: 20040301
  4. TAHOR [Concomitant]
     Route: 048
     Dates: start: 20040901
  5. DETENSIEL [Concomitant]
     Indication: DRUG USE FOR UNKNOWN INDICATION
     Route: 048
     Dates: start: 19950101

REACTIONS (2)
  - DIABETES MELLITUS INADEQUATE CONTROL [None]
  - FOOT FRACTURE [None]
